FAERS Safety Report 11716859 (Version 3)
Quarter: 2015Q4

REPORT INFORMATION
  Report Type: Spontaneous
  Country: US (occurrence: US)
  Receive Date: 20151104
  Receipt Date: 20151120
  Transmission Date: 20160304
  Serious: No
  Sender: FDA-Public Use
  Company Number: US-ELI_LILLY_AND_COMPANY-US201106004165

PATIENT
  Age: 70 Year
  Sex: Female

DRUGS (7)
  1. FORTEO [Suspect]
     Active Substance: TERIPARATIDE
     Dosage: 20 UG, QD
     Route: 058
  2. LEXAPRO [Concomitant]
     Active Substance: ESCITALOPRAM OXALATE
     Dosage: UNK, UNKNOWN
     Route: 065
  3. FORTEO [Suspect]
     Active Substance: TERIPARATIDE
     Dosage: 20 UG, QD
     Route: 058
  4. FORTEO [Suspect]
     Active Substance: TERIPARATIDE
     Dosage: 20 UG, QD
     Route: 058
  5. FORTEO [Suspect]
     Active Substance: TERIPARATIDE
     Dosage: 20 UG, QD
     Route: 058
  6. FORTEO [Suspect]
     Active Substance: TERIPARATIDE
     Dosage: 20 UG, QD
     Route: 058
  7. FORTEO [Suspect]
     Active Substance: TERIPARATIDE
     Indication: OSTEOPOROSIS
     Dosage: 20 UG, QD
     Route: 058
     Dates: start: 201106

REACTIONS (25)
  - Continuous positive airway pressure [Unknown]
  - Wrist fracture [Unknown]
  - Diarrhoea [Recovered/Resolved]
  - Joint injury [Unknown]
  - Injection site pruritus [Recovered/Resolved]
  - Fall [Unknown]
  - Musculoskeletal discomfort [Unknown]
  - Feeling abnormal [Unknown]
  - Dry mouth [Unknown]
  - Feeling abnormal [Unknown]
  - Malaise [Unknown]
  - Fall [Recovered/Resolved]
  - Chapped lips [Unknown]
  - Injection site erythema [Unknown]
  - Muscle spasms [Not Recovered/Not Resolved]
  - Mobility decreased [Unknown]
  - Lip dry [Unknown]
  - Injection site discolouration [Unknown]
  - Arthralgia [Recovering/Resolving]
  - Thoracic vertebral fracture [Recovering/Resolving]
  - Limb injury [Unknown]
  - Pain in extremity [Recovering/Resolving]
  - Back injury [Unknown]
  - Back pain [Recovering/Resolving]
  - Muscle spasms [Unknown]

NARRATIVE: CASE EVENT DATE: 2011
